FAERS Safety Report 8761040 (Version 1)
Quarter: 2012Q4

REPORT INFORMATION
  Report Type: 
  Country: US (occurrence: US)
  Receive Date: 20120830
  Receipt Date: 20120830
  Transmission Date: 20130627
  Serious: Yes (Hospitalization)
  Sender: FDA-Public Use
  Company Number: US-FRI-1000037936

PATIENT
  Age: 68 Year
  Sex: Female

DRUGS (10)
  1. DALIRESP [Suspect]
     Indication: CHRONIC OBSTRUCTIVE PULMONARY DISEASE
     Dosage: 500 mcg
     Route: 048
     Dates: start: 20120509, end: 20120816
  2. DALIRESP [Suspect]
     Indication: PROPHYLAXIS
  3. FLUOXETINE [Concomitant]
     Dosage: 60 mg
  4. SYMBICORT [Concomitant]
  5. PROTONIX [Concomitant]
  6. REMERON [Concomitant]
  7. CYMBALTA [Concomitant]
  8. ZOCOR [Concomitant]
  9. SPIRIVA [Concomitant]
  10. COUMADIN [Concomitant]

REACTIONS (3)
  - Splenic rupture [Recovered/Resolved]
  - Anaemia [Recovered/Resolved]
  - Confusional state [Recovered/Resolved]
